FAERS Safety Report 4644919-5 (Version None)
Quarter: 2005Q2

REPORT INFORMATION
  Report Type: 
  Country: None (occurrence: None)
  Receive Date: 20050422
  Receipt Date: 20050412
  Transmission Date: 20051028
  Serious: Yes (Hospitalization)
  Sender: FDA-Public Use
  Company Number: MED000089

PATIENT
  Age: 76 Year
  Sex: Female

DRUGS (1)
  1. HEPARIN SODIUM [Suspect]
     Dosage: 105 ML; QH; INTRAVENOUS
     Route: 042
     Dates: start: 20050201, end: 20050201

REACTIONS (3)
  - FLANK PAIN [None]
  - HYPOTENSION [None]
  - INCORRECT DOSE ADMINISTERED [None]
